APPROVED DRUG PRODUCT: CEFEPIME HYDROCHLORIDE IN PLASTIC CONTAINER
Active Ingredient: CEFEPIME HYDROCHLORIDE
Strength: EQ 100GM BASE
Dosage Form/Route: POWDER;INTRAVENOUS
Application: A209408 | Product #001
Applicant: SAMSON MEDICAL TECHNOLOGIES LLC
Approved: Aug 21, 2018 | RLD: No | RS: Yes | Type: RX